FAERS Safety Report 7973684-9 (Version None)
Quarter: 2011Q4

REPORT INFORMATION
  Report Type: 
  Country: None (occurrence: None)
  Receive Date: 20111213
  Receipt Date: 20111208
  Transmission Date: 20120403
  Serious: Yes (Death, Hospitalization)
  Sender: FDA-Public Use
  Company Number: US-ROCHE-775952

PATIENT
  Sex: Female
  Weight: 72 kg

DRUGS (30)
  1. VEMURAFENIB [Suspect]
     Dosage: DOSE DECREASED.
     Route: 048
  2. VEMURAFENIB [Suspect]
     Dosage: DOSE LEVEL -240 MG, TOTAL DOSE 1200 MG, TOTAL CUMULATIVE DOSE 1200 MG
     Route: 048
     Dates: start: 20110318, end: 20110416
  3. ALLOPURINOL [Concomitant]
     Indication: GOUT
     Route: 048
  4. LISINOPRIL [Concomitant]
     Route: 048
  5. ATROVENT [Concomitant]
  6. CUBICIN [Concomitant]
  7. VEMURAFENIB [Suspect]
     Indication: METASTATIC MALIGNANT MELANOMA
     Dosage: DOSE: 720 MG AM AND 480 MG PM
     Route: 048
  8. PIPERACILLIN AND PIPERACILLIN SODIUM AND TAZOBACTAM SODIUM [Suspect]
     Indication: PRODUCT USED FOR UNKNOWN INDICATION
     Route: 065
  9. NORVASC [Concomitant]
  10. BENADRYL [Concomitant]
  11. VEMURAFENIB [Suspect]
     Dosage: DOSE WAS FUTHER DECREASED.
     Route: 048
  12. TIMOLOL MALEATE [Concomitant]
  13. CATAPRES [Concomitant]
  14. PEPCID [Concomitant]
  15. VEMURAFENIB [Suspect]
     Route: 048
  16. VEMURAFENIB [Suspect]
     Dosage: 720 MG IN MORNING AND 400 MG IN EVENING. TOTAL CUMALATIVE DOSEPRIOR TO SAE: 1200 MG.
     Route: 048
  17. ARANESP [Concomitant]
  18. TOBRAMYCIN [Concomitant]
  19. LOVENOX [Concomitant]
  20. LANTUS [Concomitant]
  21. COLCRYS [Concomitant]
  22. ALBUTEROL [Concomitant]
  23. SIMVASTATIN [Concomitant]
     Route: 048
  24. PRED FORTE [Concomitant]
  25. SODIUM BICARBONATE [Concomitant]
  26. MEGACE [Concomitant]
  27. BACTRIM [Concomitant]
  28. OMEPRAZOLE [Concomitant]
     Route: 048
  29. TYGACIL [Concomitant]
  30. SOLU-MEDROL [Concomitant]

REACTIONS (31)
  - THROMBOCYTOPENIA [None]
  - URINARY TRACT INFECTION [None]
  - RESPIRATORY FAILURE [None]
  - FAILURE TO THRIVE [None]
  - RENAL FAILURE CHRONIC [None]
  - HYPERURICAEMIA [None]
  - ORAL CANDIDIASIS [None]
  - PLEURAL EFFUSION [None]
  - BILIRUBIN CONJUGATED INCREASED [None]
  - DEVICE RELATED INFECTION [None]
  - PANCREATITIS ACUTE [None]
  - PALMAR-PLANTAR ERYTHRODYSAESTHESIA SYNDROME [None]
  - BLOOD ALKALINE PHOSPHATASE INCREASED [None]
  - PULMONARY CONGESTION [None]
  - DIABETIC GASTROPARESIS [None]
  - STAPHYLOCOCCAL INFECTION [None]
  - VENTRICULAR TACHYCARDIA [None]
  - PERIPHERAL SENSORY NEUROPATHY [None]
  - ENTEROCOCCUS TEST POSITIVE [None]
  - BLOOD BICARBONATE DECREASED [None]
  - BRONCHITIS [None]
  - BLOOD BILIRUBIN INCREASED [None]
  - ASPARTATE AMINOTRANSFERASE INCREASED [None]
  - DERMATITIS EXFOLIATIVE [None]
  - CARDIAC ARREST [None]
  - ELECTROCARDIOGRAM REPOLARISATION ABNORMALITY [None]
  - ATELECTASIS [None]
  - ALANINE AMINOTRANSFERASE INCREASED [None]
  - BLOOD GLUCOSE INCREASED [None]
  - ATRIAL FIBRILLATION [None]
  - BRAIN INJURY [None]
